FAERS Safety Report 7457729-0 (Version None)
Quarter: 2011Q2

REPORT INFORMATION
  Report Type: 
  Country: None (occurrence: None)
  Receive Date: 20110502
  Receipt Date: 20110502
  Transmission Date: 20111010
  Serious: Yes (Disabling, Other)
  Sender: FDA-Public Use
  Company Number: None

PATIENT
  Age: 52 Year
  Sex: Female
  Weight: 65.9 kg

DRUGS (1)
  1. LEVAQUIN [Suspect]
     Indication: SINUSITIS
     Dosage: 5 TABLETS 750 MG LEVAQUIN 1 A DAY
     Dates: start: 20101225, end: 20101229

REACTIONS (21)
  - BONE PAIN [None]
  - DEPRESSION [None]
  - PAIN IN EXTREMITY [None]
  - HYPERHIDROSIS [None]
  - RASH MACULAR [None]
  - DROP ATTACKS [None]
  - ROTATOR CUFF SYNDROME [None]
  - SKIN ODOUR ABNORMAL [None]
  - MUSCLE TWITCHING [None]
  - JOINT LOCK [None]
  - MYALGIA [None]
  - ARTHRALGIA [None]
  - DYSKINESIA [None]
  - TRIGGER FINGER [None]
  - ANXIETY [None]
  - OEDEMA PERIPHERAL [None]
  - HEADACHE [None]
  - SKIN BURNING SENSATION [None]
  - ABASIA [None]
  - TINNITUS [None]
  - SWELLING FACE [None]
